FAERS Safety Report 8277032-9 (Version None)
Quarter: 2012Q2

REPORT INFORMATION
  Report Type: 
  Country: None (occurrence: None)
  Receive Date: 20120412
  Receipt Date: 20120403
  Transmission Date: 20120825
  Serious: Yes (Other)
  Sender: FDA-Public Use
  Company Number: US-CELGENEUS-163-21880-12040447

PATIENT
  Sex: Female
  Weight: 117.13 kg

DRUGS (17)
  1. METFORMIN HCL [Concomitant]
     Dosage: 1000 MILLIGRAM
     Route: 048
     Dates: start: 19940101
  2. PRAVACHOL [Concomitant]
     Dosage: 80 MILLIGRAM
     Route: 048
  3. DESITIN [Concomitant]
     Route: 061
     Dates: start: 20111223, end: 20120101
  4. COUMADIN [Concomitant]
     Dosage: 5 MILLIGRAM
     Route: 048
     Dates: start: 20110206
  5. SALVE [Concomitant]
     Route: 061
     Dates: start: 20111223, end: 20120101
  6. HUMULIN 70/30 [Concomitant]
     Dosage: 45/40
     Route: 041
     Dates: start: 19940101
  7. LASIX [Concomitant]
     Dosage: 40 MILLIGRAM
     Route: 048
     Dates: start: 20020101
  8. POTASSIUM [Concomitant]
     Dosage: 10 MILLIGRAM
     Route: 048
     Dates: start: 20020101
  9. METOPROLOL TARTRATE [Concomitant]
     Dosage: 25 MILLIGRAM
     Route: 048
     Dates: start: 20020101
  10. PLAVIX [Concomitant]
     Dosage: 75 MILLIGRAM
     Route: 048
     Dates: start: 20050101, end: 20120206
  11. ASPIRIN [Concomitant]
     Dosage: 81 MILLIGRAM
     Route: 048
     Dates: start: 20040101
  12. LOSARTAN POTASSIUM [Concomitant]
     Dosage: 100 MILLIGRAM
     Route: 048
  13. BENADRYL [Concomitant]
     Dosage: 25 MILLIGRAM
     Route: 048
     Dates: start: 20111223, end: 20120101
  14. NEXIUM [Concomitant]
     Dosage: 40 MILLIGRAM
     Route: 048
     Dates: start: 20090101
  15. GLIPIZIDE [Concomitant]
     Dosage: 10 MILLIGRAM
     Route: 048
     Dates: start: 19940101
  16. LOVENOX [Concomitant]
     Route: 041
     Dates: start: 20120206
  17. REVLIMID [Suspect]
     Indication: MULTIPLE MYELOMA
     Dosage: 25 MILLIGRAM
     Route: 048
     Dates: start: 20111213, end: 20120403

REACTIONS (5)
  - HAEMOPTYSIS [None]
  - CYSTITIS [None]
  - VISUAL FIELD DEFECT [None]
  - NEUROPATHY PERIPHERAL [None]
  - INFLUENZA [None]
